FAERS Safety Report 5915965-6 (Version None)
Quarter: 2008Q4

REPORT INFORMATION
  Report Type: 
  Country: None (occurrence: None)
  Receive Date: 20081013
  Receipt Date: 20081006
  Transmission Date: 20090506
  Serious: Yes (Other)
  Sender: FDA-Public Use
  Company Number: TR-RANBAXY-2008RR-18473

PATIENT
  Age: 74 Year
  Sex: Male

DRUGS (1)
  1. FENOFIBRATE [Suspect]
     Indication: LIPID METABOLISM DISORDER
     Dosage: 267 MG, UNK

REACTIONS (3)
  - EMBOLISM [None]
  - RENAL FAILURE [None]
  - RHABDOMYOLYSIS [None]
